FAERS Safety Report 4732704-5 (Version None)
Quarter: 2005Q3

REPORT INFORMATION
  Report Type: 
  Country: None (occurrence: None)
  Receive Date: 20050801
  Receipt Date: 20050506
  Transmission Date: 20060218
  Serious: Yes (Death)
  Sender: FDA-Public Use
  Company Number: 200512317GDS

PATIENT

DRUGS (4)
  1. APROTININ [Suspect]
     Indication: CORONARY ARTERY SURGERY
  2. APROTININ [Suspect]
     Indication: OPERATIVE HAEMORRHAGE
  3. ASPIRIN [Concomitant]
  4. CLOPIDOGREL BISULFATE [Concomitant]

REACTIONS (3)
  - EMBOLISM [None]
  - INTESTINAL ISCHAEMIA [None]
  - POST PROCEDURAL COMPLICATION [None]
